FAERS Safety Report 6119534-7 (Version None)
Quarter: 2009Q1

REPORT INFORMATION
  Report Type: 
  Country: None (occurrence: None)
  Receive Date: 20090316
  Receipt Date: 20090306
  Transmission Date: 20090719
  Serious: Yes (Death, Hospitalization)
  Sender: FDA-Public Use
  Company Number: A0773270A

PATIENT
  Age: 54 Year
  Sex: Female
  Weight: 110.5 kg

DRUGS (3)
  1. AVANDIA [Suspect]
     Dosage: 4MG TWICE PER DAY
     Route: 065
     Dates: start: 19990701
  2. REZULIN [Concomitant]
     Dates: start: 19981216, end: 19991201
  3. GLUCOPHAGE [Concomitant]
     Dates: start: 19980601, end: 20070219

REACTIONS (3)
  - ACUTE MYOCARDIAL INFARCTION [None]
  - CARDIAC FAILURE CONGESTIVE [None]
  - CEREBROVASCULAR ACCIDENT [None]
